FAERS Safety Report 25726690 (Version 2)
Quarter: 2025Q4

REPORT INFORMATION
  Report Type: Spontaneous
  Country: US (occurrence: US)
  Receive Date: 20250826
  Receipt Date: 20251006
  Transmission Date: 20260118
  Serious: No
  Sender: TEVA
  Company Number: US-TEVA-VS-3360592

PATIENT
  Age: 71 Year
  Sex: Female

DRUGS (1)
  1. IMATINIB [Suspect]
     Active Substance: IMATINIB
     Indication: Product used for unknown indication
     Dosage: UNKNOWN
     Route: 048
     Dates: start: 2020

REACTIONS (4)
  - Rash [Not Recovered/Not Resolved]
  - Feeling hot [Unknown]
  - Product use issue [Unknown]
  - Product availability issue [Unknown]
